FAERS Safety Report 5961003-9 (Version None)
Quarter: 2008Q4

REPORT INFORMATION
  Report Type: 
  Country: None (occurrence: None)
  Receive Date: 20081119
  Receipt Date: 20081111
  Transmission Date: 20090506
  Serious: Yes (Death)
  Sender: FDA-Public Use
  Company Number: 220002N08USA

PATIENT
  Age: 2 Year
  Sex: Male

DRUGS (3)
  1. SAIZEN [Suspect]
     Dosage: SUBCUTANEOUS; 3.4 M, 6 IN 1 WEEKS, SUBCUTANEOUS
     Route: 058
     Dates: start: 20061102, end: 20081108
  2. SAIZEN [Suspect]
     Dosage: SUBCUTANEOUS; 3.4 M, 6 IN 1 WEEKS, SUBCUTANEOUS
     Route: 058
     Dates: start: 20080507, end: 20081108
  3. ANTICONVULSANT (ANTIEPILEPTICS) [Concomitant]

REACTIONS (1)
  - DEATH [None]
